FAERS Safety Report 6599172-2 (Version None)
Quarter: 2010Q1

REPORT INFORMATION
  Report Type: 
  Country: None (occurrence: None)
  Receive Date: 20100217
  Receipt Date: 20100129
  Transmission Date: 20100710
  Serious: Yes (Hospitalization)
  Sender: FDA-Public Use
  Company Number: 1000011712

PATIENT
  Age: 78 Year
  Sex: Male

DRUGS (4)
  1. ESCITALOPRAM OXALATE [Suspect]
     Dosage: ORAL
     Route: 048
     Dates: start: 20091101, end: 20091120
  2. THEOPHYLLINE [Suspect]
     Dosage: 1200 MG (400 MG, 3 IN 1 D), ORAL
     Route: 048
     Dates: end: 20091120
  3. ATHYMIL [Concomitant]
  4. ALLOPURINOL [Concomitant]

REACTIONS (10)
  - ABDOMINAL PAIN [None]
  - AGITATION [None]
  - CONVULSION [None]
  - CYANOSIS [None]
  - DIARRHOEA [None]
  - HAEMORRHAGE [None]
  - HYPOKALAEMIA [None]
  - HYPOVOLAEMIA [None]
  - LIVEDO RETICULARIS [None]
  - URINARY RETENTION [None]
